FAERS Safety Report 5310833-5 (Version None)
Quarter: 2007Q2

REPORT INFORMATION
  Report Type: 
  Country: None (occurrence: None)
  Receive Date: 20070428
  Receipt Date: 20070417
  Transmission Date: 20071010
  Serious: Yes (Other)
  Sender: FDA-Public Use
  Company Number: US-PFIZER INC-2006057978

PATIENT
  Sex: Female
  Weight: 62.6 kg

DRUGS (5)
  1. COLESTID TABLET [Suspect]
     Indication: BLOOD CHOLESTEROL INCREASED
     Route: 048
     Dates: start: 20060401, end: 20060401
  2. SYNTHROID [Concomitant]
     Route: 065
  3. ESTROGENS [Concomitant]
     Route: 065
  4. PROGESTERONE [Concomitant]
     Route: 065
  5. VITAMINS [Concomitant]
     Route: 065

REACTIONS (3)
  - ERUCTATION [None]
  - HYPERSENSITIVITY [None]
  - OESOPHAGEAL STENOSIS [None]
